FAERS Safety Report 25852197 (Version 1)
Quarter: 2025Q3

REPORT INFORMATION
  Report Type: Report from Study
  Country: GB (occurrence: GB)
  Receive Date: 20250926
  Receipt Date: 20250926
  Transmission Date: 20251021
  Serious: Yes (Death, Other)
  Sender: NOVARTIS
  Company Number: GB-002147023-NVSC2025GB129975

PATIENT
  Age: 20 Year
  Sex: Female
  Weight: 67 kg

DRUGS (2)
  1. MEKINIST [Suspect]
     Active Substance: TRAMETINIB DIMETHYL SULFOXIDE
     Indication: Osteosarcoma
     Dosage: 2 MG, QD
     Route: 048
  2. MEKINIST [Suspect]
     Active Substance: TRAMETINIB DIMETHYL SULFOXIDE
     Dosage: 1.5 MG, QD
     Route: 048

REACTIONS (5)
  - Osteosarcoma [Fatal]
  - Malignant neoplasm progression [Fatal]
  - Stomatitis [Recovered/Resolved]
  - Oral pain [Recovered/Resolved]
  - Mouth ulceration [Unknown]

NARRATIVE: CASE EVENT DATE: 20250727
